FAERS Safety Report 11318233 (Version 1)
Quarter: 2015Q3

REPORT INFORMATION
  Report Type: Spontaneous
  Country: FR (occurrence: FR)
  Receive Date: 20150728
  Receipt Date: 20150728
  Transmission Date: 20151125
  Serious: Yes (Hospitalization)
  Sender: FDA-Public Use
  Company Number: PHHY2015FR087508

PATIENT
  Age: 62 Year
  Sex: Male

DRUGS (2)
  1. VALPROATE SODIUM. [Suspect]
     Active Substance: VALPROATE SODIUM
     Indication: EPILEPSY
     Dosage: 1 G, BID
     Route: 065
  2. PHENOBARBITAL. [Concomitant]
     Active Substance: PHENOBARBITAL
     Indication: EPILEPSY
     Dosage: 100 MG, BID
     Route: 065

REACTIONS (4)
  - Confusional state [Recovered/Resolved]
  - Encephalopathy [Recovered/Resolved]
  - Status epilepticus [Recovered/Resolved]
  - Cognitive disorder [Recovered/Resolved]
